FAERS Safety Report 4916944-8 (Version None)
Quarter: 2006Q1

REPORT INFORMATION
  Report Type: 
  Country: None (occurrence: None)
  Receive Date: 20060221
  Receipt Date: 20060127
  Transmission Date: 20060701
  Serious: Yes (Hospitalization)
  Sender: FDA-Public Use
  Company Number: PHBS2006JP01699

PATIENT
  Age: 55 Year
  Sex: Female

DRUGS (2)
  1. LAMISIL [Suspect]
     Indication: NAIL TINEA
     Dosage: 125 MG/D
     Route: 048
     Dates: start: 20051220, end: 20051222
  2. LAMISIL [Suspect]
     Dosage: 125 MG/D
     Route: 048
     Dates: start: 20060101, end: 20060125

REACTIONS (2)
  - EYE PRURITUS [None]
  - POST PROCEDURAL COMPLICATION [None]
